FAERS Safety Report 8787888 (Version 1)
Quarter: 2012Q4

REPORT INFORMATION
  Report Type: Report from Study
  Country: US (occurrence: US)
  Receive Date: 20120914
  Receipt Date: 20120914
  Transmission Date: 20130627
  Serious: No
  Sender: FDA-Public Use
  Company Number: US-VERTEX PHARMACEUTICAL INC.-AE-2012-005529

PATIENT
  Age: 49 Year
  Sex: Male

DRUGS (7)
  1. INCIVEK [Suspect]
     Indication: HEPATITIS C
     Route: 048
     Dates: start: 20120202, end: 20120223
  2. PEGASYS [Concomitant]
     Indication: HEPATITIS C
     Route: 058
     Dates: start: 20120202, end: 20120222
  3. PEGASYS [Concomitant]
     Route: 058
     Dates: start: 20120223
  4. PEGASYS [Concomitant]
     Dates: start: 20120406
  5. RIBAVIRIN [Concomitant]
     Indication: HEPATITIS C
     Route: 048
     Dates: start: 20120202, end: 20120222
  6. RIBAVIRIN [Concomitant]
     Route: 048
     Dates: start: 20120223
  7. RIBAVIRIN [Concomitant]
     Dates: start: 20120406

REACTIONS (1)
  - Platelet count decreased [Not Recovered/Not Resolved]
